FAERS Safety Report 5877660-1 (Version None)
Quarter: 2008Q3

REPORT INFORMATION
  Report Type: 
  Country: None (occurrence: None)
  Receive Date: 20080911
  Receipt Date: 20080901
  Transmission Date: 20090109
  Serious: Yes (Other)
  Sender: FDA-Public Use
  Company Number: IT-ALLERGAN-0809307US

PATIENT
  Sex: Female

DRUGS (1)
  1. ALPHAGAN [Suspect]
     Indication: OCULAR HYPERTENSION
     Dosage: 2 GTT, QD
     Route: 047
     Dates: start: 20080417, end: 20080717

REACTIONS (4)
  - CONJUNCTIVITIS [None]
  - DERMATITIS [None]
  - HYPERSENSITIVITY [None]
  - SKIN ULCER [None]
